FAERS Safety Report 4723285-0 (Version None)
Quarter: 2005Q3

REPORT INFORMATION
  Report Type: 
  Country: None (occurrence: None)
  Receive Date: 20050719
  Receipt Date: 20041012
  Transmission Date: 20060218
  Serious: Yes (Hospitalization)
  Sender: FDA-Public Use
  Company Number: 206197

PATIENT
  Age: 36 Year
  Sex: Female
  Weight: 113.3993 kg

DRUGS (6)
  1. AVONEX [Suspect]
     Indication: MULTIPLE SCLEROSIS
     Dosage: 30 UG; QW; IM;  7.5 UG; QW; IM
     Route: 030
     Dates: start: 20040601, end: 20040801
  2. AVONEX [Suspect]
     Indication: MULTIPLE SCLEROSIS
     Dosage: 30 UG; QW; IM;  7.5 UG; QW; IM
     Route: 030
     Dates: start: 20040801
  3. LEXAPRO [Concomitant]
  4. NEXIUM [Concomitant]
  5. ESTRACE [Concomitant]
  6. . [Concomitant]

REACTIONS (2)
  - HEPATIC ENZYME INCREASED [None]
  - MULTIPLE SCLEROSIS RELAPSE [None]
